FAERS Safety Report 10032571 (Version 3)
Quarter: 2014Q4

REPORT INFORMATION
  Report Type: Spontaneous
  Country: US (occurrence: US)
  Receive Date: 20140324
  Receipt Date: 20141219
  Transmission Date: 20150528
  Serious: No
  Sender: FDA-Public Use
  Company Number: US-SHIONOGI, INC-2014000039

PATIENT
  Age: 47 Year
  Sex: Female
  Weight: 74.83 kg

DRUGS (4)
  1. MULTIVITAMIN                       /00097801/ [Concomitant]
     Active Substance: VITAMINS
     Indication: PRODUCT USED FOR UNKNOWN INDICATION
     Dosage: UNK
     Route: 065
  2. OSPHENA [Suspect]
     Active Substance: OSPEMIFENE
     Indication: ATROPHIC VULVOVAGINITIS
     Dosage: 60 MG, QD
     Route: 048
     Dates: start: 201310
  3. DHEA [Concomitant]
     Active Substance: DEHYDROEPIANDROSTERONE-3-SULFATE SODIUM
     Indication: PRODUCT USED FOR UNKNOWN INDICATION
     Dosage: UNK
     Route: 065
  4. OSPHENA [Suspect]
     Active Substance: OSPEMIFENE
     Indication: OFF LABEL USE
     Dosage: 60 MG, QOD
     Route: 048
     Dates: end: 201401

REACTIONS (5)
  - Dysmenorrhoea [Recovered/Resolved]
  - Prescribed underdose [Recovered/Resolved]
  - Off label use [Recovered/Resolved]
  - Vaginal haemorrhage [Recovered/Resolved]
  - Nipple pain [Recovered/Resolved]

NARRATIVE: CASE EVENT DATE: 201310
